FAERS Safety Report 9555216 (Version 1)
Quarter: 2013Q3

REPORT INFORMATION
  Report Type: Spontaneous
  Country: US (occurrence: None)
  Receive Date: 20130813
  Receipt Date: 20130813
  Transmission Date: 20140515
  Serious: Yes (Hospitalization)
  Sender: FDA-Public Use
  Company Number: PIR#CC400154147

PATIENT
  Age: 41 Year
  Sex: Male
  Weight: 165 kg

DRUGS (5)
  1. HEPARIN SODIUM IN 5% DEXTROSE (B. BRAUN MEDICAL INC.) [Suspect]
     Indication: PULMONARY EMBOLISM
     Route: 042
  2. ASPIRIN [Concomitant]
  3. LISINOPRIL [Concomitant]
  4. METOPROLOL [Concomitant]
  5. INSULIN [Concomitant]

REACTIONS (1)
  - Drug ineffective [None]
